FAERS Safety Report 7450955-6 (Version None)
Quarter: 2011Q2

REPORT INFORMATION
  Report Type: 
  Country: None (occurrence: None)
  Receive Date: 20110502
  Receipt Date: 20110427
  Transmission Date: 20111010
  Serious: Yes (Other)
  Sender: FDA-Public Use
  Company Number: US-ROCHE-747872

PATIENT
  Sex: Male
  Weight: 63.5 kg

DRUGS (3)
  1. ACCUTANE [Suspect]
     Indication: ACNE
     Dosage: ONE DOSE
     Route: 048
     Dates: start: 19920101
  2. ACCUTANE [Suspect]
     Route: 048
     Dates: start: 19930101, end: 19931201
  3. ACCUTANE [Suspect]
     Route: 048
     Dates: start: 19950901, end: 19951201

REACTIONS (9)
  - ABDOMINAL PAIN [None]
  - RECTAL HAEMORRHAGE [None]
  - COLITIS ULCERATIVE [None]
  - INFLAMMATORY BOWEL DISEASE [None]
  - IRRITABLE BOWEL SYNDROME [None]
  - ARTHRITIS [None]
  - CHEILITIS [None]
  - INTESTINAL HAEMORRHAGE [None]
  - LIP EXFOLIATION [None]
